FAERS Safety Report 17642185 (Version 3)
Quarter: 2024Q4

REPORT INFORMATION
  Report Type: Spontaneous
  Country: JP (occurrence: JP)
  Receive Date: 20200408
  Receipt Date: 20241108
  Transmission Date: 20250115
  Serious: Yes (Death, Hospitalization, Other)
  Sender: SANOFI AVENTIS
  Company Number: JP-MLMSERVICE-20200330-2232797-1

PATIENT
  Age: 45 Year
  Sex: Male
  Weight: 58.6 kg

DRUGS (6)
  1. METHYLPREDNISOLONE [Suspect]
     Active Substance: METHYLPREDNISOLONE
     Dosage: UNK
  2. ANTI-THYMOCYTE GLOBULIN (RABBIT) NOS [Suspect]
     Active Substance: LAPINE T-LYMPHOCYTE IMMUNE GLOBULIN
     Dosage: UNK
  3. CYCLOSPORINE [Suspect]
     Active Substance: CYCLOSPORINE
     Indication: Aplastic anaemia
     Dosage: 200 MG, QD
     Route: 065
  4. DANAZOL [Concomitant]
     Active Substance: DANAZOL
     Indication: Aplastic anaemia
     Dosage: UNK
     Route: 065
  5. GRANULOCYTE COLONY-STIMULATING FACTOR NOS [Concomitant]
     Active Substance: GRANULOCYTE COLONY-STIMULATING FACTOR NOS
     Indication: Aplastic anaemia
     Dosage: UNK
     Route: 065
  6. DEFERASIROX [Concomitant]
     Active Substance: DEFERASIROX
     Indication: Haemosiderosis
     Dosage: UNK
     Route: 065
     Dates: start: 2010, end: 2012

REACTIONS (5)
  - Enterococcal sepsis [Fatal]
  - Pneumonia fungal [Fatal]
  - End stage renal disease [Not Recovered/Not Resolved]
  - Renal ischaemia [Not Recovered/Not Resolved]
  - Nephropathy toxic [Not Recovered/Not Resolved]

NARRATIVE: CASE EVENT DATE: 20120101
